FAERS Safety Report 5079579-5 (Version None)
Quarter: 2006Q3

REPORT INFORMATION
  Report Type: 
  Country: None (occurrence: None)
  Receive Date: 20060811
  Receipt Date: 20060811
  Transmission Date: 20061208
  Serious: Yes (Hospitalization)
  Sender: FDA-Public Use
  Company Number: None

PATIENT
  Age: 62 Year
  Sex: Male

DRUGS (19)
  1. FUROSEMIDE  120MG PO BID [Suspect]
     Route: 048
     Dates: start: 20060610, end: 20060627
  2. VALSARTAN [Suspect]
     Dates: start: 20060123, end: 20060627
  3. LASIX [Concomitant]
  4. ASPIRIN [Concomitant]
  5. ALBUTEROL/ATROVENT NEBULIZERS [Concomitant]
  6. HUMULIN 70/30 [Concomitant]
  7. METOPROLOL TARTRATE [Concomitant]
  8. VITAMIN A+D TOPICAL OINTMENT [Concomitant]
  9. PHENERGAN HCL [Concomitant]
  10. GABAPENTIN [Concomitant]
  11. METRONIDAZOLE [Concomitant]
  12. SIMVASTATIN [Concomitant]
  13. NITROGLYCERIN [Concomitant]
  14. HYDROXYZINE [Concomitant]
  15. TETRACYCLINE [Concomitant]
  16. VALSARTAN [Concomitant]
  17. CLONAZEPAM [Concomitant]
  18. POTASSIUM CHLORIDE [Concomitant]
  19. OMEPRAZOLE [Concomitant]

REACTIONS (4)
  - CARDIAC FAILURE [None]
  - CONDITION AGGRAVATED [None]
  - DIZZINESS [None]
  - HYPOTENSION [None]
